FAERS Safety Report 8590053-1 (Version None)
Quarter: 2012Q3

REPORT INFORMATION
  Report Type: 
  Country: None (occurrence: None)
  Receive Date: 20120813
  Receipt Date: 20120808
  Transmission Date: 20120928
  Serious: No
  Sender: FDA-Public Use
  Company Number: US-BAYER-2012-081681

PATIENT
  Sex: Female

DRUGS (1)
  1. CLIMARA PRO [Suspect]
     Indication: AUTONOMIC NERVOUS SYSTEM IMBALANCE
     Dosage: 0.045MG/0.015MG/DAY
     Route: 062

REACTIONS (4)
  - ANGER [None]
  - UNEVALUABLE EVENT [None]
  - MOOD ALTERED [None]
  - RASH PRURITIC [None]
